FAERS Safety Report 19411661 (Version 1)
Quarter: 2021Q2

REPORT INFORMATION
  Report Type: Spontaneous
  Country: US (occurrence: US)
  Receive Date: 20210614
  Receipt Date: 20210614
  Transmission Date: 20210717
  Serious: Yes (Other)
  Sender: FDA-Public Use
  Company Number: US-GLAXOSMITHKLINE-US2021124931

PATIENT
  Sex: Female

DRUGS (1)
  1. ZEJULA [Suspect]
     Active Substance: NIRAPARIB
     Indication: OVARIAN CANCER
     Dosage: 200 MG, QD
     Dates: start: 20210524

REACTIONS (6)
  - Hypoaesthesia [Unknown]
  - Neuropathy peripheral [Unknown]
  - Nausea [Unknown]
  - Blood pressure increased [Unknown]
  - Decreased appetite [Unknown]
  - Neuralgia [Unknown]
